FAERS Safety Report 7266866-5 (Version None)
Quarter: 2011Q1

REPORT INFORMATION
  Report Type: 
  Country: None (occurrence: None)
  Receive Date: 20110201
  Receipt Date: 20110119
  Transmission Date: 20110831
  Serious: Yes (Other)
  Sender: FDA-Public Use
  Company Number: JP-EISAI INC-E2090-01478-SPO-JP

PATIENT
  Age: 2 Year
  Sex: Male

DRUGS (3)
  1. LAMICTAL [Concomitant]
  2. DEPAKENE [Concomitant]
  3. EXCEGRAN [Suspect]
     Indication: EPILEPSY
     Route: 048
     Dates: start: 20091201, end: 20100701

REACTIONS (1)
  - NEPHROLITHIASIS [None]
